FAERS Safety Report 9003515 (Version 2)
Quarter: 2013Q1

REPORT INFORMATION
  Report Type: Spontaneous
  Country: US (occurrence: US)
  Receive Date: 20130108
  Receipt Date: 20130212
  Transmission Date: 20140127
  Serious: Yes (Other)
  Sender: FDA-Public Use
  Company Number: US-FRI-1000041391

PATIENT
  Age: 60 Year
  Sex: Male

DRUGS (11)
  1. ARMOUR THYROID [Suspect]
     Indication: HYPOTHYROIDISM
     Dosage: 60 MG
     Route: 048
     Dates: start: 20121130, end: 20130105
  2. ARMOUR THYROID [Suspect]
     Indication: AUTOIMMUNE THYROIDITIS
     Dosage: 30 MG
     Route: 048
     Dates: start: 20130106, end: 20130111
  3. ARMOUR THYROID [Suspect]
     Indication: HYPOTHYROIDISM
     Dosage: 45 MG
     Route: 048
     Dates: start: 20130112, end: 20130123
  4. ARMOUR THYROID [Suspect]
     Indication: AUTOIMMUNE THYROIDITIS
     Dosage: 30 MG
     Route: 048
     Dates: start: 20130124
  5. METFORMIN [Suspect]
     Indication: BLOOD GLUCOSE INCREASED
     Dosage: 500 MG
  6. VITAMIN-C [Concomitant]
     Dosage: 500 MG
  7. VITAMIN-D [Concomitant]
     Dosage: 200 IU
  8. CALCIUM [Concomitant]
     Dosage: 500 MG
  9. VITAMIN-K [Concomitant]
     Dosage: 40 MCG
  10. CITRACAL [Concomitant]
  11. ASPIRIN [Concomitant]
     Dosage: 81 MG

REACTIONS (6)
  - Respiratory tract infection [Recovered/Resolved]
  - Pyrexia [Recovered/Resolved]
  - Night sweats [Recovered/Resolved]
  - Insomnia [Not Recovered/Not Resolved]
  - Temperature intolerance [Not Recovered/Not Resolved]
  - Blood thyroid stimulating hormone decreased [Not Recovered/Not Resolved]
